FAERS Safety Report 17422473 (Version 1)
Quarter: 2020Q1

REPORT INFORMATION
  Report Type: Spontaneous
  Country: US (occurrence: US)
  Receive Date: 20200215
  Receipt Date: 20200215
  Transmission Date: 20200409
  Serious: Yes (Hospitalization, Other)
  Sender: FDA-Public Use
  Company Number: US-AUROBINDO-AUR-APL-2020-007350

PATIENT
  Age: 57 Year
  Sex: Female

DRUGS (5)
  1. PROPRANOLOL HYDROCHLORIDE. [Concomitant]
     Active Substance: PROPRANOLOL HYDROCHLORIDE
     Indication: PANIC ATTACK
     Dosage: 20 MILLIGRAM, TWO TIMES A DAY
     Route: 048
  2. QUETIAPINE. [Concomitant]
     Active Substance: QUETIAPINE
     Indication: SLEEP DISORDER
     Dosage: 200 MILLIGRAM, ONCE A DAY (NIGHTLY)
     Route: 048
  3. VALPROIC ACID. [Concomitant]
     Active Substance: VALPROIC ACID
     Indication: AFFECTIVE DISORDER
     Dosage: 500 MILLIGRAM, TWO TIMES A DAY
     Route: 048
  4. CITALOPRAM [Suspect]
     Active Substance: CITALOPRAM HYDROBROMIDE
     Indication: ANXIETY
     Dosage: 20 MILLIGRAM, ONCE A DAY
     Route: 048
  5. PROPRANOLOL HYDROCHLORIDE. [Concomitant]
     Active Substance: PROPRANOLOL HYDROCHLORIDE
     Dosage: 30 MILLIGRAM, TWO TIMES A DAY
     Route: 048

REACTIONS (7)
  - Ataxia [Recovered/Resolved]
  - Depressed level of consciousness [Recovered/Resolved]
  - Lethargy [Recovered/Resolved]
  - Confusional state [Recovered/Resolved]
  - Electrocardiogram QT prolonged [Recovered/Resolved]
  - Mental status changes [Recovered/Resolved]
  - Sinus tachycardia [Recovered/Resolved]
